FAERS Safety Report 4969784-8 (Version None)
Quarter: 2006Q2

REPORT INFORMATION
  Report Type: 
  Country: None (occurrence: None)
  Receive Date: 20060411
  Receipt Date: 20051101
  Transmission Date: 20061013
  Serious: Yes (Death, Other)
  Sender: FDA-Public Use
  Company Number: US-MERCK-0511USA00247

PATIENT
  Age: 74 Year
  Sex: Female
  Weight: 105 kg

DRUGS (2)
  1. VIOXX [Suspect]
     Indication: ARTHRITIS
     Route: 048
     Dates: start: 20040618, end: 20040619
  2. VIOXX [Suspect]
     Route: 048
     Dates: start: 20040620, end: 20040731

REACTIONS (3)
  - CONVULSION [None]
  - HYPERTENSION [None]
  - INTRACRANIAL HAEMATOMA [None]
